FAERS Safety Report 5484103-9 (Version None)
Quarter: 2007Q4

REPORT INFORMATION
  Report Type: 
  Country: None (occurrence: None)
  Receive Date: 20071012
  Receipt Date: 20071001
  Transmission Date: 20080405
  Serious: Yes (Hospitalization)
  Sender: FDA-Public Use
  Company Number: US-SHR-US-2007-036352

PATIENT
  Age: 52 Year
  Sex: Female

DRUGS (3)
  1. BETASERON [Suspect]
     Dosage: 4 MIU, EVERY 2D
     Route: 058
     Dates: start: 20070804
  2. BETASERON [Suspect]
     Dosage: 6 MIU, EVERY 2D
     Route: 058
  3. BETASERON [Suspect]
     Dosage: 8 MIU, EVERY 2D
     Route: 058

REACTIONS (2)
  - LOSS OF CONSCIOUSNESS [None]
  - MENORRHAGIA [None]
